FAERS Safety Report 13350446 (Version 2)
Quarter: 2017Q1

REPORT INFORMATION
  Report Type: Spontaneous
  Country: DE (occurrence: DE)
  Receive Date: 20170320
  Receipt Date: 20170324
  Transmission Date: 20170429
  Serious: Yes (Other)
  Sender: FDA-Public Use
  Company Number: DE-JNJFOC-20170319595

PATIENT
  Age: 77 Year
  Sex: Male

DRUGS (1)
  1. TRABECTEDIN [Suspect]
     Active Substance: TRABECTEDIN
     Indication: SYNOVIAL SARCOMA METASTATIC
     Route: 042

REACTIONS (5)
  - Hepatic cirrhosis [Unknown]
  - Sepsis [Unknown]
  - Haematotoxicity [Unknown]
  - Ascites [Unknown]
  - Hepatotoxicity [Unknown]
